FAERS Safety Report 9112764 (Version 3)
Quarter: 2013Q1

REPORT INFORMATION
  Report Type: Report from Study
  Country: US (occurrence: US)
  Receive Date: 20130211
  Receipt Date: 20130319
  Transmission Date: 20140127
  Serious: Yes (Hospitalization)
  Sender: FDA-Public Use
  Company Number: US-ROCHE-1188792

PATIENT
  Age: 60 Year
  Sex: Male

DRUGS (5)
  1. VEMURAFENIB [Suspect]
     Indication: MALIGNANT MELANOMA
     Dosage: INTERRUPTED
     Route: 048
     Dates: start: 20130111
  2. VEMURAFENIB [Suspect]
     Dosage: REDUCED DOSE 50 %
     Route: 048
  3. GABAPENTIN [Suspect]
     Indication: NEURALGIA
     Route: 048
     Dates: start: 20111108, end: 20130131
  4. MORPHINE SULFATE [Suspect]
     Indication: PAIN
     Route: 048
     Dates: start: 20130107, end: 20130131
  5. TRAZODONE [Suspect]
     Indication: DEPRESSION
     Route: 048
     Dates: start: 20111025, end: 20130128

REACTIONS (2)
  - Confusional state [Recovered/Resolved]
  - Pyrexia [Recovered/Resolved]
